FAERS Safety Report 21253240 (Version 3)
Quarter: 2022Q3

REPORT INFORMATION
  Report Type: Spontaneous
  Country: US (occurrence: US)
  Receive Date: 20220825
  Receipt Date: 20220908
  Transmission Date: 20221027
  Serious: Yes (Other)
  Sender: FDA-Public Use
  Company Number: US-PFIZER INC-202201080452

PATIENT
  Age: 75 Year
  Sex: Male
  Weight: 97.52 kg

DRUGS (6)
  1. PAXLOVID [Suspect]
     Active Substance: NIRMATRELVIR\RITONAVIR
     Indication: COVID-19 treatment
     Dosage: [PF-07321332 300 MG]/[RITONAVIR 100 MG]; 2X/DAY
     Dates: start: 20220812, end: 20220817
  2. LISINOPRIL [Concomitant]
     Active Substance: LISINOPRIL
     Indication: Blood pressure increased
     Dosage: 40 MG, DAILY (AT NIGHT)
     Dates: start: 2012
  3. PRAVASTATIN [Concomitant]
     Active Substance: PRAVASTATIN
     Indication: Blood cholesterol increased
     Dosage: 40 MG, DAILY
     Dates: start: 1985
  4. ASPIRIN [Concomitant]
     Active Substance: ASPIRIN
     Indication: Myocardial infarction
     Dosage: UNK, (TAKES QUARTER OF REGULAR ASPIRIN 325MG FOR TOTAL DOSE OF 82MG, AT NIGHT, BEFORE BED)
  5. MINERALS\VITAMINS [Concomitant]
     Active Substance: MINERALS\VITAMINS
     Indication: Macular degeneration
     Dosage: 1 DF, 2X/DAY (1 TABLET; MINI SOFT GEL; DOSE: UNKNOWN)
  6. FISH OIL [Concomitant]
     Active Substance: FISH OIL
     Dosage: 3000 MG, DAILY

REACTIONS (4)
  - Blood pressure abnormal [Not Recovered/Not Resolved]
  - COVID-19 [Not Recovered/Not Resolved]
  - Disease recurrence [Not Recovered/Not Resolved]
  - Rhinalgia [Not Recovered/Not Resolved]

NARRATIVE: CASE EVENT DATE: 20220819
